FAERS Safety Report 23863271 (Version 7)
Quarter: 2024Q3

REPORT INFORMATION
  Report Type: Spontaneous
  Country: US (occurrence: US)
  Receive Date: 20240516
  Receipt Date: 20240923
  Transmission Date: 20241017
  Serious: No
  Sender: PFIZER
  Company Number: US-PFIZER INC-202400099316

PATIENT

DRUGS (1)
  1. SODIUM BICARBONATE [Suspect]
     Active Substance: SODIUM BICARBONATE
     Dosage: 8.4% SODIUM BICARBONATE 50 ML PREFILLED SYRINGE

REACTIONS (3)
  - Incorrect disposal of product [Unknown]
  - Device issue [Unknown]
  - Device safety feature issue [Unknown]
